FAERS Safety Report 8309117-2 (Version None)
Quarter: 2012Q2

REPORT INFORMATION
  Report Type: 
  Country: None (occurrence: None)
  Receive Date: 20120424
  Receipt Date: 20120419
  Transmission Date: 20120825
  Serious: Yes (Hospitalization)
  Sender: FDA-Public Use
  Company Number: PHHY2012FR033716

PATIENT
  Age: 9 Year
  Sex: Female

DRUGS (1)
  1. DESLORATADINE [Suspect]
     Indication: RHINITIS SEASONAL

REACTIONS (2)
  - INFECTIOUS MONONUCLEOSIS [None]
  - CYTOLYTIC HEPATITIS [None]
